FAERS Safety Report 7508644-5 (Version None)
Quarter: 2011Q2

REPORT INFORMATION
  Report Type: 
  Country: None (occurrence: None)
  Receive Date: 20110527
  Receipt Date: 20100323
  Transmission Date: 20111010
  Serious: No
  Sender: FDA-Public Use
  Company Number: A0855058A

PATIENT
  Age: 15 Year
  Sex: Female
  Weight: 63.6 kg

DRUGS (1)
  1. VENTOLIN HFA [Suspect]
     Dosage: 4SPR SINGLE DOSE
     Route: 061

REACTIONS (7)
  - INTENTIONAL DRUG MISUSE [None]
  - ERYTHEMA [None]
  - INCORRECT ROUTE OF DRUG ADMINISTRATION [None]
  - THERMAL BURN [None]
  - SKIN HYPOPIGMENTATION [None]
  - SKIN HYPERPIGMENTATION [None]
  - DRUG ADMINISTRATION ERROR [None]
